FAERS Safety Report 8339697-2 (Version None)
Quarter: 2012Q2

REPORT INFORMATION
  Report Type: 
  Country: None (occurrence: None)
  Receive Date: 20120507
  Receipt Date: 20120430
  Transmission Date: 20120825
  Serious: Yes (Other)
  Sender: FDA-Public Use
  Company Number: US-BAYER-2012-019569

PATIENT
  Age: 61 Year
  Sex: Male

DRUGS (8)
  1. INSULIN [Concomitant]
     Indication: DIABETES MELLITUS
     Dosage: 30 UNITS BID, ADJUSTED ACCORDING TO BLOOD SUGAR
  2. COUGH AND COLD PREPARATIONS [Concomitant]
     Indication: COUGH
  3. TRAMADOL HYDROCHLORIDE [Concomitant]
     Indication: PAIN
     Route: 048
  4. NOVOLOG [Concomitant]
     Indication: DIABETES MELLITUS
  5. ANTIHYPERTENSIVES [Concomitant]
     Indication: HYPERTENSION
  6. HYPNOTICS AND SEDATIVES [Concomitant]
  7. NEXAVAR [Suspect]
     Indication: HEPATIC NEOPLASM MALIGNANT
     Dosage: 400 MG, BID
     Dates: start: 20120223
  8. XANAX [Concomitant]
     Indication: STRESS
     Dosage: UNK UNK, PRN
     Route: 048

REACTIONS (35)
  - VOMITING [None]
  - ASTHENIA [None]
  - WEIGHT DECREASED [None]
  - NAUSEA [None]
  - GENITAL BURNING SENSATION [None]
  - SCIATICA [None]
  - ABDOMINAL PAIN LOWER [None]
  - CONSTIPATION [None]
  - DIARRHOEA [None]
  - BLOOD GLUCOSE DECREASED [None]
  - FLATULENCE [None]
  - DECREASED APPETITE [None]
  - CHANGE OF BOWEL HABIT [None]
  - CHROMATURIA [None]
  - MUSCLE FATIGUE [None]
  - APHAGIA [None]
  - FATIGUE [None]
  - ANORECTAL DISCOMFORT [None]
  - RASH [None]
  - VESSEL PUNCTURE SITE HAEMATOMA [None]
  - BLOOD BILIRUBIN DECREASED [None]
  - DYSPNOEA EXERTIONAL [None]
  - PRURITUS [None]
  - ROTATOR CUFF SYNDROME [None]
  - ASCITES [None]
  - UNEVALUABLE EVENT [None]
  - PRURITUS GENERALISED [None]
  - NECK PAIN [None]
  - ABDOMINAL DISCOMFORT [None]
  - CONJUNCTIVITIS INFECTIVE [None]
  - RASH MACULAR [None]
  - EPISTAXIS [None]
  - GINGIVAL BLEEDING [None]
  - BACK PAIN [None]
  - COUGH [None]
